FAERS Safety Report 7917331-0 (Version None)
Quarter: 2011Q4

REPORT INFORMATION
  Report Type: 
  Country: None (occurrence: None)
  Receive Date: 20111116
  Receipt Date: 20111111
  Transmission Date: 20120403
  Serious: Yes (Hospitalization)
  Sender: FDA-Public Use
  Company Number: US-B.I. PHARMACEUTICALS,INC./RIDGEFIELD-2011-BP-26058BP

PATIENT
  Sex: Male

DRUGS (8)
  1. LEVOTHYROXINE SODIUM [Concomitant]
     Indication: HYPOTHYROIDISM
     Dosage: 75 MCG
     Dates: start: 20010101
  2. LISINOPRIL [Concomitant]
     Indication: HYPERTENSION
     Dates: start: 20060101
  3. SYMBICORT [Concomitant]
     Indication: BRONCHITIS CHRONIC
     Dates: start: 20110101
  4. SPIRIVA [Suspect]
     Indication: BRONCHITIS CHRONIC
     Route: 055
     Dates: start: 20080101
  5. GLUCOPHAGE [Concomitant]
     Indication: DIABETES MELLITUS
     Dosage: 2000 MG
     Route: 048
     Dates: start: 19960101
  6. VYTORIN [Concomitant]
     Indication: BLOOD CHOLESTEROL INCREASED
     Route: 048
     Dates: start: 20060101
  7. PROAIR HFA [Concomitant]
     Indication: BRONCHITIS CHRONIC
     Dates: start: 20050101
  8. LANTUS [Concomitant]
     Indication: DIABETES MELLITUS
     Route: 058
     Dates: start: 20080101

REACTIONS (1)
  - BRONCHITIS VIRAL [None]
